FAERS Safety Report 17143475 (Version 1)
Quarter: 2019Q4

REPORT INFORMATION
  Report Type: Spontaneous
  Country: CN (occurrence: CN)
  Receive Date: 20191211
  Receipt Date: 20191211
  Transmission Date: 20200122
  Serious: Yes (Other)
  Sender: FDA-Public Use
  Company Number: CN-AMERICAN REGENT INC-20190974

PATIENT
  Age: 64 Year
  Sex: Female
  Weight: 77 kg

DRUGS (1)
  1. VENOFER [Suspect]
     Active Substance: IRON SUCROSE
     Indication: END STAGE RENAL DISEASE
     Dosage: 20 MG, 1 IN 1D 1 DAYS
     Dates: start: 20190418, end: 20190418

REACTIONS (2)
  - Product use in unapproved indication [Unknown]
  - Chills [Recovered/Resolved]

NARRATIVE: CASE EVENT DATE: 20190418
